FAERS Safety Report 9391453 (Version 2)
Quarter: 2013Q3

REPORT INFORMATION
  Report Type: Report from Study
  Country: DE (occurrence: DE)
  Receive Date: 20130709
  Receipt Date: 20130725
  Transmission Date: 20140515
  Serious: Yes (Hospitalization, Other)
  Sender: FDA-Public Use
  Company Number: DE-B.I. PHARMACEUTICALS,INC./RIDGEFIELD-2013-DE-01784DE

PATIENT
  Age: 37 Year
  Sex: Female
  Weight: 40 kg

DRUGS (3)
  1. SPIRIVA [Suspect]
     Route: 055
     Dates: start: 20130703, end: 20130703
  2. TIMONIL [Suspect]
     Dosage: 1200 MG
     Route: 048
     Dates: start: 20130703, end: 20130703
  3. DIAZEPAM [Suspect]
     Dosage: 3 ANZ
     Route: 048
     Dates: start: 20130703, end: 20130703

REACTIONS (4)
  - Medication error [Recovered/Resolved]
  - Ataxia [Recovered/Resolved]
  - Dysarthria [Recovered/Resolved]
  - Vomiting [Recovered/Resolved]
